FAERS Safety Report 16596256 (Version 2)
Quarter: 2019Q3

REPORT INFORMATION
  Report Type: Spontaneous
  Country: CA (occurrence: CA)
  Receive Date: 20190719
  Receipt Date: 20190808
  Transmission Date: 20191004
  Serious: Yes (Other)
  Sender: FDA-Public Use
  Company Number: CA-TEVA-2019-CA-1080205

PATIENT

DRUGS (1)
  1. CIPROFLOXACIN. [Suspect]
     Active Substance: CIPROFLOXACIN
     Route: 065

REACTIONS (4)
  - Gait inability [Unknown]
  - Muscle spasms [Unknown]
  - Fear [Unknown]
  - Pain [Unknown]
